FAERS Safety Report 7800342-3 (Version None)
Quarter: 2011Q4

REPORT INFORMATION
  Report Type: 
  Country: None (occurrence: None)
  Receive Date: 20111006
  Receipt Date: 20111003
  Transmission Date: 20120403
  Serious: Yes (Other)
  Sender: FDA-Public Use
  Company Number: BE-BRISTOL-MYERS SQUIBB COMPANY-16029357

PATIENT
  Age: 19 Year
  Sex: Male

DRUGS (5)
  1. MONTELUKAST SODIUM [Suspect]
     Dates: start: 20100801
  2. TRAZODONE HCL [Suspect]
     Dates: start: 20060101
  3. BARACLUDE [Suspect]
     Indication: HEPATITIS B
     Dosage: SINCE 3 MONTHS
     Route: 048
     Dates: start: 20110531, end: 20110830
  4. TRAMADOL HCL [Suspect]
     Dates: start: 20070101
  5. LYRICA [Suspect]
     Dates: start: 20060101

REACTIONS (1)
  - VASCULITIS [None]
